FAERS Safety Report 14333598 (Version 1)
Quarter: 2017Q4

REPORT INFORMATION
  Report Type: Spontaneous
  Country: US (occurrence: US)
  Receive Date: 20171227
  Receipt Date: 20171227
  Transmission Date: 20180321
  Serious: Yes (Hospitalization)
  Sender: FDA-Public Use
  Company Number: None

PATIENT
  Age: 72 Year
  Sex: Female

DRUGS (8)
  1. XALKORI [Concomitant]
     Active Substance: CRIZOTINIB
  2. DEXAMETHASONE. [Concomitant]
     Active Substance: DEXAMETHASONE
  3. TARCEVA [Suspect]
     Active Substance: ERLOTINIB HYDROCHLORIDE
     Indication: KAPOSI^S SARCOMA
     Route: 048
     Dates: start: 20150716, end: 20171226
  4. FLUTICASONE. [Concomitant]
     Active Substance: FLUTICASONE
  5. CALCIUM [Concomitant]
     Active Substance: CALCIUM
  6. ALBUTEROL. [Concomitant]
     Active Substance: ALBUTEROL
  7. RELOXIFENE [Concomitant]
  8. VITAMIN D3 [Concomitant]
     Active Substance: CHOLECALCIFEROL

REACTIONS (2)
  - Hospitalisation [None]
  - Malaise [None]
